FAERS Safety Report 21246426 (Version 1)
Quarter: 2022Q3

REPORT INFORMATION
  Report Type: Spontaneous
  Country: US (occurrence: US)
  Receive Date: 20220824
  Receipt Date: 20220824
  Transmission Date: 20221026
  Serious: No
  Sender: FDA-Public Use
  Company Number: US-009507513-2207USA009218

PATIENT
  Age: 55 Year
  Sex: Female

DRUGS (2)
  1. INTRON A [Suspect]
     Active Substance: INTERFERON ALFA-2B
     Indication: Cutaneous T-cell lymphoma
     Dosage: UNK
  2. INTRON A [Suspect]
     Active Substance: INTERFERON ALFA-2B
     Indication: Cutaneous T-cell lymphoma recurrent
     Dosage: 3 MILLI-INTERNATIONAL UNIT, THREE TIMES WEEKLY (TIW)
     Route: 058

REACTIONS (1)
  - Product use in unapproved indication [Unknown]
